FAERS Safety Report 19468183 (Version 6)
Quarter: 2022Q1

REPORT INFORMATION
  Report Type: Report from Study
  Country: US (occurrence: US)
  Receive Date: 20210628
  Receipt Date: 20220225
  Transmission Date: 20220423
  Serious: Yes (Hospitalization, Other)
  Sender: FDA-Public Use
  Company Number: NVSC2021US136954

PATIENT
  Age: 66 Year
  Sex: Female

DRUGS (2)
  1. ENTRESTO [Suspect]
     Active Substance: SACUBITRIL\VALSARTAN
     Indication: Cardiac failure chronic
     Dosage: 50 MG (24 MG SACUBITRIL/ 26 MG VALSARTAN) BID
     Route: 048
     Dates: start: 20210506
  2. ENTRESTO [Suspect]
     Active Substance: SACUBITRIL\VALSARTAN
     Indication: Cardiac failure
     Dosage: 100 MG (49 MG SACUBITRIL/ 51 MG VALSARTAN) BID
     Route: 048

REACTIONS (8)
  - Influenza [Unknown]
  - Cough [Unknown]
  - Thyroid cancer [Recovered/Resolved]
  - Pulmonary mass [Unknown]
  - Thyroid neoplasm [Recovered/Resolved]
  - Cardiac disorder [Unknown]
  - Lung disorder [Unknown]
  - Product dose omission issue [Recovered/Resolved]

NARRATIVE: CASE EVENT DATE: 20210616
